FAERS Safety Report 4836337-1 (Version None)
Quarter: 2005Q4

REPORT INFORMATION
  Report Type: 
  Country: None (occurrence: None)
  Receive Date: 20051121
  Receipt Date: 20051121
  Transmission Date: 20060501
  Serious: Yes (Life-Threatening, Other)
  Sender: FDA-Public Use
  Company Number: None

PATIENT
  Sex: Female
  Weight: 71.6683 kg

DRUGS (2)
  1. PAXIL [Suspect]
     Indication: ANXIETY
     Dosage: VARIED, TAPERED, STARTED 30 MG  DAILY  PO
     Route: 048
     Dates: start: 20020125, end: 20050427
  2. PAXIL [Suspect]
     Indication: DEPRESSION
     Dosage: VARIED, TAPERED, STARTED 30 MG  DAILY  PO
     Route: 048
     Dates: start: 20020125, end: 20050427

REACTIONS (10)
  - ANGER [None]
  - BACK PAIN [None]
  - DEPRESSION [None]
  - DISSOCIATION [None]
  - DRUG WITHDRAWAL SYNDROME [None]
  - HEADACHE [None]
  - MOOD SWINGS [None]
  - NECK PAIN [None]
  - PSYCHOTIC DISORDER [None]
  - SEROTONIN SYNDROME [None]
